FAERS Safety Report 4273324-9 (Version None)
Quarter: 2004Q1

REPORT INFORMATION
  Report Type: 
  Country: None (occurrence: None)
  Receive Date: 20040119
  Receipt Date: 20030414
  Transmission Date: 20041129
  Serious: Yes (Life-Threatening, Hospitalization, Disabling)
  Sender: FDA-Public Use
  Company Number: 200311244EU

PATIENT
  Sex: Female

DRUGS (9)
  1. ARAVA [Suspect]
     Indication: RHEUMATOID ARTHRITIS
     Route: 048
     Dates: start: 20030123, end: 20030224
  2. PREDNISOLONE [Concomitant]
     Indication: RHEUMATOID ARTHRITIS
     Route: 048
     Dates: start: 19950101
  3. NORVASC [Concomitant]
     Indication: HYPERTENSION
     Route: 048
     Dates: start: 20010316
  4. EVISTA [Concomitant]
     Indication: OSTEOPOROSIS
     Route: 048
     Dates: start: 19990101
  5. PANODIL RETARD [Concomitant]
     Indication: PAIN
     Route: 048
     Dates: start: 20010101
  6. SERETIDE [Concomitant]
     Indication: ASTHMA
     Route: 055
     Dates: start: 20010101
  7. VENTOLIN DISKUS [Concomitant]
     Indication: ASTHMA
     Dates: start: 20010101
  8. QUESTRAN [Concomitant]
     Dates: start: 20030312
  9. CYCLOSPORINE [Concomitant]
     Dates: end: 20030101

REACTIONS (9)
  - ACUTE MYOCARDIAL INFARCTION [None]
  - ALANINE AMINOTRANSFERASE INCREASED [None]
  - DIARRHOEA [None]
  - EJECTION FRACTION DECREASED [None]
  - GOITRE [None]
  - HYPERTHYROIDISM [None]
  - METABOLIC DISORDER [None]
  - RASH [None]
  - THYROID DISORDER [None]
